FAERS Safety Report 23047967 (Version 4)
Quarter: 2023Q4

REPORT INFORMATION
  Report Type: Report from Study
  Country: US (occurrence: US)
  Receive Date: 20231010
  Receipt Date: 20231205
  Transmission Date: 20240110
  Serious: Yes (Other)
  Sender: FDA-Public Use
  Company Number: US-UCBSA-2023048779

PATIENT
  Age: 68 Year
  Sex: Male
  Weight: 88.889 kg

DRUGS (1)
  1. ROZANOLIXIZUMAB [Suspect]
     Active Substance: ROZANOLIXIZUMAB
     Indication: Myasthenia gravis
     Dosage: 560 MILLIGRAM, WEEKLY (QW) X 6 WEEKS PER CYCLE
     Route: 058
     Dates: start: 20230926

REACTIONS (5)
  - Blood glucose increased [Recovered/Resolved]
  - Headache [Recovered/Resolved]
  - Eyelid ptosis [Not Recovered/Not Resolved]
  - Speech disorder [Not Recovered/Not Resolved]
  - Dysphagia [Not Recovered/Not Resolved]

NARRATIVE: CASE EVENT DATE: 20230926
